FAERS Safety Report 15002261 (Version 1)
Quarter: 2018Q2

REPORT INFORMATION
  Report Type: Report from Study
  Country: JP (occurrence: JP)
  Receive Date: 20180612
  Receipt Date: 20180612
  Transmission Date: 20180711
  Serious: Yes (Death, Hospitalization, Other)
  Sender: FDA-Public Use
  Company Number: JP-MYLANLABS-2018M1039529

PATIENT
  Sex: Female

DRUGS (1)
  1. KETAMINE [Suspect]
     Active Substance: KETAMINE
     Indication: PRODUCT USED FOR UNKNOWN INDICATION
     Route: 065

REACTIONS (7)
  - Cardiac arrest [Unknown]
  - Cerebrovascular accident [Fatal]
  - Loss of consciousness [Unknown]
  - Blood pressure increased [Fatal]
  - Subarachnoid haemorrhage [Fatal]
  - Brain oedema [Unknown]
  - Maternal exposure during delivery [Unknown]
